FAERS Safety Report 20951694 (Version 2)
Quarter: 2022Q3

REPORT INFORMATION
  Report Type: Spontaneous
  Country: IL (occurrence: IL)
  Receive Date: 20220613
  Receipt Date: 20220713
  Transmission Date: 20221027
  Serious: Yes (Hospitalization, Other)
  Sender: FDA-Public Use
  Company Number: IL-BAYER-2022P004466

PATIENT
  Age: 44 Year
  Sex: Female

DRUGS (1)
  1. MIRENA [Suspect]
     Active Substance: LEVONORGESTREL
     Indication: Contraception
     Dosage: 20?G/DAY
     Route: 015
     Dates: start: 20220521

REACTIONS (8)
  - Coronary artery dissection [None]
  - Genital haemorrhage [None]
  - Device dislocation [Recovered/Resolved]
  - Chest pain [None]
  - Nausea [None]
  - Asthenia [None]
  - Pain in extremity [None]
  - Oropharyngeal pain [None]

NARRATIVE: CASE EVENT DATE: 20220522
